FAERS Safety Report 20202598 (Version 2)
Quarter: 2021Q4

REPORT INFORMATION
  Report Type: Spontaneous
  Country: US (occurrence: US)
  Receive Date: 20211218
  Receipt Date: 20211223
  Transmission Date: 20220303
  Serious: No
  Sender: FDA-Public Use
  Company Number: US-SA-2021SA417857

PATIENT
  Age: 59 Year
  Sex: Male

DRUGS (1)
  1. DUPIXENT [Suspect]
     Active Substance: DUPILUMAB
     Indication: Dermatitis
     Dosage: 300 MG, QOW
     Route: 058
     Dates: start: 20210914

REACTIONS (4)
  - Dry eye [Recovering/Resolving]
  - Ocular hyperaemia [Recovering/Resolving]
  - Product use in unapproved indication [Unknown]
  - Eye disorder [Unknown]

NARRATIVE: CASE EVENT DATE: 20210101
